FAERS Safety Report 5615332-9 (Version None)
Quarter: 2008Q1

REPORT INFORMATION
  Report Type: 
  Country: None (occurrence: None)
  Receive Date: 20080206
  Receipt Date: 20080125
  Transmission Date: 20080703
  Serious: Yes (Other)
  Sender: FDA-Public Use
  Company Number: US-BAYER-200812359NA

PATIENT
  Age: 81 Year
  Sex: Female

DRUGS (20)
  1. ULTRAVIST (PHARMACY BULK) [Suspect]
     Indication: COMPUTERISED TOMOGRAM
     Dosage: TOTAL DAILY DOSE: 100 ML  UNIT DOSE: 100 ML
     Route: 042
     Dates: start: 20080117, end: 20080117
  2. PROTONIX [Concomitant]
  3. BECONAISE AQ [Concomitant]
  4. COZAAR [Concomitant]
     Dosage: UNIT DOSE: 100 MG
  5. CLARITIN [Concomitant]
  6. LASIX [Concomitant]
     Dosage: AS USED: 40 MG  UNIT DOSE: 40 MG
  7. POTASSIUM CHLORIDE [Concomitant]
  8. HUMIBID [Concomitant]
  9. MUCINEX [Concomitant]
  10. DARVOCET-N 100 [Concomitant]
     Indication: PAIN
  11. ASPIRIN [Concomitant]
     Dosage: UNIT DOSE: 81 MG
  12. PREMARIN [Concomitant]
     Dosage: AS USED: 0.45 MG  UNIT DOSE: 0.45 MG
  13. XANAX [Concomitant]
  14. VALIUM [Concomitant]
  15. PSYLLIUM [Concomitant]
  16. FIBROCON [Concomitant]
  17. SENNA [Concomitant]
  18. XOPENEX [Concomitant]
  19. NITROSTAT [Concomitant]
  20. READI-CAT [Concomitant]
     Route: 048
     Dates: start: 20080117, end: 20080117

REACTIONS (5)
  - DIZZINESS [None]
  - DYSPHAGIA [None]
  - EYE SWELLING [None]
  - OEDEMA PERIPHERAL [None]
  - PHARYNGOLARYNGEAL DISCOMFORT [None]
